FAERS Safety Report 25947560 (Version 1)
Quarter: 2025Q4

REPORT INFORMATION
  Report Type: Spontaneous
  Country: US (occurrence: None)
  Receive Date: 20251021
  Receipt Date: 20251021
  Transmission Date: 20260119
  Serious: Yes (Other)
  Sender: FDA-CTU
  Company Number: None

PATIENT
  Age: 50 Year
  Sex: Male

DRUGS (1)
  1. CAPECITABINE [Suspect]
     Active Substance: CAPECITABINE
     Indication: Rectal cancer
     Dosage: OTHER QUANTITY : PER PATIENT EXPERIENCED NAUSEA, VOMITING, STOMACH UPSET, AND ABNORMAL SODIUM LEVEL;?OTHER FREQUENCY : 5 TABLETS, BID FOR 14 DAYS OF THEN 7 DAYS OF ;?

REACTIONS (4)
  - Nausea [None]
  - Vomiting [None]
  - Abdominal discomfort [None]
  - Blood sodium abnormal [None]
